FAERS Safety Report 25764427 (Version 1)
Quarter: 2025Q3

REPORT INFORMATION
  Report Type: Spontaneous
  Country: US (occurrence: US)
  Receive Date: 20250905
  Receipt Date: 20250905
  Transmission Date: 20251020
  Serious: No
  Sender: DOMPE FARMACEUTICI
  Company Number: US-FARMAPROD-202501-0101

PATIENT
  Sex: Female

DRUGS (10)
  1. OXERVATE [Suspect]
     Active Substance: CENEGERMIN-BKBJ
     Indication: Neurotrophic keratopathy
     Route: 047
     Dates: start: 20241230
  2. OXERVATE [Suspect]
     Active Substance: CENEGERMIN-BKBJ
  3. MAGNESIUM [Concomitant]
     Active Substance: MAGNESIUM
  4. PROBIOTICS NOS [Concomitant]
     Active Substance: PROBIOTICS NOS
  5. NALTREXONE HYDROCHLORIDE [Concomitant]
     Active Substance: NALTREXONE HYDROCHLORIDE
  6. CEQUA [Concomitant]
     Active Substance: CYCLOSPORINE
  7. SEMAGLUTIDE [Concomitant]
     Active Substance: SEMAGLUTIDE
  8. OMEGA 7 [Concomitant]
  9. FISH OIL\OMEGA-3 FATTY ACIDS [Concomitant]
     Active Substance: FISH OIL\OMEGA-3 FATTY ACIDS
  10. B COMPLEX B12 [Concomitant]

REACTIONS (6)
  - Eyelid pain [Unknown]
  - Eye pain [Unknown]
  - Swelling of eyelid [Unknown]
  - Eye irritation [Unknown]
  - Nasal discomfort [Unknown]
  - Rhinalgia [Unknown]
